FAERS Safety Report 13940738 (Version 1)
Quarter: 2017Q3

REPORT INFORMATION
  Report Type: Spontaneous
  Country: US (occurrence: US)
  Receive Date: 20170906
  Receipt Date: 20170906
  Transmission Date: 20171127
  Serious: Yes (Other)
  Sender: FDA-Public Use
  Company Number: US-PFIZER INC-2017373552

PATIENT
  Age: 26 Year
  Sex: Male

DRUGS (2)
  1. ALPRAZOLAM. [Suspect]
     Active Substance: ALPRAZOLAM
     Dosage: UNK
  2. CARFENTANIL [Suspect]
     Active Substance: CARFENTANIL
     Indication: SUBSTANCE ABUSE
     Dosage: INJECTED APPROXIMATELY 60MCG

REACTIONS (4)
  - Bradypnoea [None]
  - Toxicity to various agents [Recovering/Resolving]
  - Rhabdomyolysis [None]
  - Unresponsive to stimuli [None]
